FAERS Safety Report 6278933-3 (Version None)
Quarter: 2009Q3

REPORT INFORMATION
  Report Type: 
  Country: None (occurrence: None)
  Receive Date: 20090723
  Receipt Date: 20070403
  Transmission Date: 20100115
  Serious: Yes (Hospitalization, Other)
  Sender: FDA-Public Use
  Company Number: US-ASTRAZENECA-2006UW07006

PATIENT
  Age: 450 Month
  Sex: Female
  Weight: 80.3 kg

DRUGS (32)
  1. SEROQUEL [Suspect]
     Indication: DEPRESSION
     Route: 048
     Dates: start: 20030401, end: 20060601
  2. SEROQUEL [Suspect]
     Dosage: 25 MG-100 MG
     Route: 048
     Dates: start: 20030523
  3. ABILIFY [Concomitant]
     Dates: start: 20061001
  4. PHENERGAN [Concomitant]
  5. CODEINE [Concomitant]
  6. AZITHROMYCIN [Concomitant]
  7. AVANDAMET [Concomitant]
  8. PREMARIN [Concomitant]
  9. ASPIRIN [Concomitant]
  10. CELEXA [Concomitant]
  11. LORATADINE [Concomitant]
  12. AMBIEN [Concomitant]
  13. KLONOPIN [Concomitant]
  14. TYLENOL (CAPLET) [Concomitant]
  15. CARISOPRODOL [Concomitant]
  16. CARBATROL [Concomitant]
  17. ATIVAN [Concomitant]
  18. NICOTINE [Concomitant]
  19. ZYPREXA [Concomitant]
  20. LEXAPRO [Concomitant]
  21. FLEXERIL [Concomitant]
  22. IBUPROFEN [Concomitant]
  23. HYDROCODONE [Concomitant]
  24. CLARITIN [Concomitant]
  25. RANITIDINE [Concomitant]
  26. AEROBID [Concomitant]
  27. KEPPRA [Concomitant]
  28. TEMAZEPAM [Concomitant]
  29. MICONAZOLE [Concomitant]
  30. FAMOTIDINE [Concomitant]
  31. LEVAQUIN [Concomitant]
  32. LYRICA [Concomitant]

REACTIONS (6)
  - DIABETES MELLITUS [None]
  - MAJOR DEPRESSION [None]
  - MENTAL DISORDER [None]
  - SUICIDAL IDEATION [None]
  - SUICIDE ATTEMPT [None]
  - WEIGHT INCREASED [None]
